FAERS Safety Report 21129832 (Version 1)
Quarter: 2022Q3

REPORT INFORMATION
  Report Type: Spontaneous
  Country: ES (occurrence: ES)
  Receive Date: 20220726
  Receipt Date: 20220726
  Transmission Date: 20221027
  Serious: Yes (Hospitalization)
  Sender: FDA-Public Use
  Company Number: None

PATIENT
  Age: 49 Year
  Sex: Male

DRUGS (3)
  1. DARUNAVIR [Suspect]
     Active Substance: DARUNAVIR
     Indication: HIV infection
     Dosage: DARUNAVIR / EMTRICITABINA / TENOFOVIR / COBECISTAT COMPRIMIDOS 800/ 200 / 10 MG / 150 MG
     Route: 065
     Dates: start: 20190724
  2. RANOLAZINE [Suspect]
     Active Substance: RANOLAZINE
     Indication: Chest pain
     Dosage: 375/12 H.
     Route: 048
     Dates: start: 20210929, end: 20211007
  3. ATORVASTATINA ABEX [Concomitant]
     Indication: Product used for unknown indication
     Dosage: 40 MG DIA
     Route: 048
     Dates: start: 20210831

REACTIONS (3)
  - General physical health deterioration [Recovering/Resolving]
  - Gait disturbance [Recovering/Resolving]
  - Asthenia [Not Recovered/Not Resolved]

NARRATIVE: CASE EVENT DATE: 20211001
